FAERS Safety Report 5714137-8 (Version None)
Quarter: 2008Q2

REPORT INFORMATION
  Report Type: 
  Country: None (occurrence: None)
  Receive Date: 20080423
  Receipt Date: 20080417
  Transmission Date: 20081010
  Serious: Yes (Other)
  Sender: FDA-Public Use
  Company Number: PHBS2008IE03709

PATIENT
  Age: 15 Year
  Sex: Male

DRUGS (2)
  1. RITALIN [Suspect]
     Dosage: 10 MG/DAY
     Route: 048
  2. RITALIN LA [Suspect]
     Dosage: 30 MG/DAY
     Route: 048

REACTIONS (6)
  - BLOOD BILIRUBIN INCREASED [None]
  - GILBERT'S SYNDROME [None]
  - JAUNDICE [None]
  - LIVER FUNCTION TEST ABNORMAL [None]
  - LOCALISED INFECTION [None]
  - OCULAR ICTERUS [None]
